FAERS Safety Report 7671872-2 (Version None)
Quarter: 2011Q3

REPORT INFORMATION
  Report Type: 
  Country: None (occurrence: None)
  Receive Date: 20110809
  Receipt Date: 20110725
  Transmission Date: 20111222
  Serious: Yes (Hospitalization)
  Sender: FDA-Public Use
  Company Number: NL-ROCHE-795430

PATIENT
  Age: 74 Year
  Sex: Male

DRUGS (3)
  1. BEVACIZUMAB [Suspect]
     Route: 065
  2. CAPECITABINE [Suspect]
     Route: 065
  3. OXALIPLATIN [Concomitant]

REACTIONS (2)
  - GASTROINTESTINAL PERFORATION [None]
  - ENTEROCOLITIS [None]
